FAERS Safety Report 11812655 (Version 1)
Quarter: 2015Q4

REPORT INFORMATION
  Report Type: Spontaneous
  Country: FR (occurrence: FR)
  Receive Date: 20151208
  Receipt Date: 20151208
  Transmission Date: 20160305
  Serious: Yes (Hospitalization, Other)
  Sender: FDA-Public Use
  Company Number: FR-BRISTOL-MYERS SQUIBB COMPANY-BMS-2015-077252

PATIENT
  Age: 29 Year
  Sex: Female
  Weight: 105 kg

DRUGS (2)
  1. CERAZETTE                          /00011001/ [Concomitant]
     Active Substance: DESOGESTREL
     Dosage: 1 DF, QD
     Route: 048
     Dates: start: 201401
  2. IPILIMUMAB [Suspect]
     Active Substance: IPILIMUMAB
     Indication: METASTATIC MALIGNANT MELANOMA
     Dosage: UNK MG, UNK
     Route: 065
     Dates: start: 20140107, end: 20140519

REACTIONS (3)
  - Nervous system disorder [Recovered/Resolved]
  - Hepatocellular injury [Recovered/Resolved]
  - Toxicity to various agents [Unknown]

NARRATIVE: CASE EVENT DATE: 20140508
